FAERS Safety Report 8041184-6 (Version None)
Quarter: 2012Q1

REPORT INFORMATION
  Report Type: 
  Country: None (occurrence: None)
  Receive Date: 20120112
  Receipt Date: 20120104
  Transmission Date: 20120608
  Serious: Yes (Hospitalization, Other)
  Sender: FDA-Public Use
  Company Number: US-BAYER-2011-049640

PATIENT
  Age: 40 Year
  Sex: Female

DRUGS (10)
  1. PREDNISONE TAB [Concomitant]
     Dosage: 20 MG, UNK
     Route: 048
     Dates: start: 20060612
  2. SKELAXIN [Concomitant]
     Dosage: 800 MG, UNK
     Route: 048
     Dates: start: 20060622
  3. PROPOXYPHENE HYDROCHLORIDE [Concomitant]
     Dosage: UNK
     Dates: start: 20060622
  4. CARISOPRODOL [Concomitant]
     Dosage: 350 MG, UNK
     Route: 048
     Dates: start: 20060605
  5. DIAZEPAM [Concomitant]
     Dosage: 5 MG, UNK
     Route: 048
     Dates: start: 20060603
  6. YASMIN [Suspect]
     Dosage: UNK
     Route: 048
     Dates: start: 20050901, end: 20060601
  7. YAZ [Suspect]
     Dosage: UNK
     Route: 048
     Dates: start: 20050901, end: 20060601
  8. PIROXICAM [Concomitant]
     Dosage: 20 MG, UNK
     Route: 048
     Dates: start: 20060605
  9. LYRICA [Concomitant]
     Dosage: 50 MG, UNK
     Route: 048
     Dates: start: 20060623
  10. CELEBREX [Concomitant]
     Dosage: 200 MG, UNK
     Route: 048
     Dates: start: 20060623

REACTIONS (7)
  - THROMBOSIS [None]
  - EMOTIONAL DISTRESS [None]
  - INJURY [None]
  - ANXIETY [None]
  - DEEP VEIN THROMBOSIS [None]
  - GENERAL PHYSICAL HEALTH DETERIORATION [None]
  - PAIN [None]
